FAERS Safety Report 7680476-7 (Version None)
Quarter: 2011Q3

REPORT INFORMATION
  Report Type: 
  Country: None (occurrence: None)
  Receive Date: 20110812
  Receipt Date: 20110801
  Transmission Date: 20111222
  Serious: Yes (Hospitalization, Other)
  Sender: FDA-Public Use
  Company Number: US-JNJFOC-20080802244

PATIENT
  Sex: Female
  Weight: 74 kg

DRUGS (8)
  1. REMICADE [Suspect]
     Route: 042
     Dates: start: 20080309
  2. REMICADE [Suspect]
     Indication: CROHN'S DISEASE
     Route: 042
     Dates: start: 20051229
  3. REMICADE [Suspect]
     Route: 042
     Dates: start: 20080907
  4. REMICADE [Suspect]
     Route: 042
     Dates: start: 20051229
  5. MESALAMINE [Concomitant]
  6. REMICADE [Suspect]
     Indication: INFLAMMATORY BOWEL DISEASE
     Route: 042
     Dates: start: 20080907
  7. REMICADE [Suspect]
     Route: 042
     Dates: start: 20080309
  8. MERCAPTOPURINE [Concomitant]

REACTIONS (1)
  - HIDRADENITIS [None]
